FAERS Safety Report 4683547-2 (Version None)
Quarter: 2005Q2

REPORT INFORMATION
  Report Type: 
  Country: None (occurrence: None)
  Receive Date: 20050606
  Receipt Date: 20050606
  Transmission Date: 20051028
  Serious: Yes (Other)
  Sender: FDA-Public Use
  Company Number: None

PATIENT
  Sex: Female
  Weight: 89.8122 kg

DRUGS (1)
  1. PAXIL [Suspect]
     Indication: FAMILY STRESS
     Dates: start: 20030608, end: 20050603

REACTIONS (1)
  - UNEVALUABLE EVENT [None]
